FAERS Safety Report 5069426-X (Version None)
Quarter: 2006Q3

REPORT INFORMATION
  Report Type: 
  Country: None (occurrence: None)
  Receive Date: 20060802
  Receipt Date: 20060802
  Transmission Date: 20061208
  Serious: Yes (Hospitalization)
  Sender: FDA-Public Use
  Company Number: None

PATIENT
  Age: 56 Year
  Sex: Male
  Weight: 71 kg

DRUGS (6)
  1. PHENYTOIN [Suspect]
     Indication: CONVULSION
     Dosage: PO BID ON SINCE 1979 SAME DOSE SINCE 2003
     Dates: start: 19790101
  2. PHENYTOIN [Suspect]
     Indication: HEAD INJURY
     Dosage: PO BID ON SINCE 1979 SAME DOSE SINCE 2003
     Dates: start: 19790101
  3. PHENYTOIN [Suspect]
     Indication: CONVULSION
     Dosage: PO BID ON SINCE 1979 SAME DOSE SINCE 2003
     Dates: start: 20030101
  4. PHENYTOIN [Suspect]
     Indication: HEAD INJURY
     Dosage: PO BID ON SINCE 1979 SAME DOSE SINCE 2003
     Dates: start: 20030101
  5. VALPROIC ACID [Concomitant]
  6. LAMOTRIGINE [Concomitant]

REACTIONS (4)
  - CONFUSIONAL STATE [None]
  - COORDINATION ABNORMAL [None]
  - DRUG TOXICITY [None]
  - LETHARGY [None]
